FAERS Safety Report 7112328-5 (Version None)
Quarter: 2010Q4

REPORT INFORMATION
  Report Type: 
  Country: None (occurrence: None)
  Receive Date: 20101119
  Receipt Date: 20100722
  Transmission Date: 20110411
  Serious: No
  Sender: FDA-Public Use
  Company Number: A0871905A

PATIENT
  Age: 64 Year
  Sex: Male

DRUGS (6)
  1. AVODART [Suspect]
     Indication: BENIGN PROSTATIC HYPERPLASIA
     Dosage: 1CAP PER DAY
     Route: 048
     Dates: start: 20100720, end: 20100721
  2. FELODIPINE [Concomitant]
  3. OMEPRAZOLE [Concomitant]
  4. GLUCOSAMINE/CHONDROITIN [Concomitant]
  5. CALCIUM [Concomitant]
  6. MAGNESIUM [Concomitant]

REACTIONS (2)
  - FLUID RETENTION [None]
  - WEIGHT INCREASED [None]
